FAERS Safety Report 5871192-2 (Version None)
Quarter: 2008Q3

REPORT INFORMATION
  Report Type: 
  Country: None (occurrence: None)
  Receive Date: 20080829
  Receipt Date: 20080819
  Transmission Date: 20090109
  Serious: Yes (Hospitalization)
  Sender: FDA-Public Use
  Company Number: 2008-182280-NL

PATIENT
  Age: 57 Year
  Sex: Male

DRUGS (8)
  1. MIRTAZAPINE [Suspect]
     Indication: DEPRESSION
     Dosage: 15 MG DIALY, 15, MG AT BEDTIME
  2. HALOPERIDOL [Suspect]
     Indication: SCHIZOPHRENIA
     Dosage: 4 MG TID, BEFORE DAY 1
  3. HALOPERIDOL [Suspect]
     Indication: SCHIZOPHRENIA
     Dosage: 1 MG QID INTRAMUSCULAR, ON DAY 13
     Route: 030
  4. RISPERIDONE [Suspect]
     Indication: SCHIZOPHRENIA
     Dosage: 1 MG BID, DAY 1
  5. RISPERIDONE [Suspect]
     Indication: SCHIZOPHRENIA
     Dosage: 2 MG BID, DAY 2
  6. RISPERIDONE [Suspect]
     Indication: SCHIZOPHRENIA
     Dosage: 3 MG BID, DAY 3
  7. BENZTROPINE MESYLATE [Concomitant]
  8. PRAZOSIN HCL [Concomitant]

REACTIONS (9)
  - BRONCHITIS [None]
  - CATATONIA [None]
  - CEREBRAL ATROPHY [None]
  - DECUBITUS ULCER [None]
  - DELUSION [None]
  - MUSCLE RIGIDITY [None]
  - NEUROLEPTIC MALIGNANT SYNDROME [None]
  - PNEUMONIA ASPIRATION [None]
  - UNRESPONSIVE TO STIMULI [None]
